FAERS Safety Report 21493938 (Version 1)
Quarter: 2022Q4

REPORT INFORMATION
  Report Type: Spontaneous
  Country: US (occurrence: US)
  Receive Date: 20221021
  Receipt Date: 20221021
  Transmission Date: 20230112
  Serious: No
  Sender: FDA-Public Use
  Company Number: US-ORGANON-O2210USA000248

PATIENT
  Age: 69 Year
  Sex: Female

DRUGS (8)
  1. REMERON [Suspect]
     Active Substance: MIRTAZAPINE
     Indication: Depression
     Dosage: 15 MILLIGRAM
     Route: 048
     Dates: start: 2002
  2. REMERON [Suspect]
     Active Substance: MIRTAZAPINE
     Dosage: 30 MG NIGHTLY
     Route: 048
  3. BUPROPION [Suspect]
     Active Substance: BUPROPION
     Indication: Depression
     Dosage: 100-MG SLOW RELEASE TWICE DAILY
     Route: 048
     Dates: start: 2002, end: 2002
  4. BUPROPION [Suspect]
     Active Substance: BUPROPION
     Dosage: INCREASED TO 3 TIMES DAILY
     Route: 048
     Dates: start: 2002
  5. QUETIAPINE [Suspect]
     Active Substance: QUETIAPINE
     Indication: Depression
     Dosage: 100 MG AT BEDTIME (NIGHTLY)
     Dates: start: 2002
  6. VENLAFAXINE [Suspect]
     Active Substance: VENLAFAXINE HYDROCHLORIDE
     Indication: Depression
     Dosage: EXTENDED RELEASE, WHICH WAS TITRATED UP TO 225 MG DAILY
  7. ALPRAZOLAM [Concomitant]
     Active Substance: ALPRAZOLAM
     Dosage: 0.5 MG 3 TIMES DAILY
     Dates: start: 2002
  8. TEMAZEPAM [Concomitant]
     Active Substance: TEMAZEPAM
     Dosage: 30 MG AT BEDTIME AS NEEDED
     Dates: start: 2002

REACTIONS (1)
  - Drug ineffective [Unknown]

NARRATIVE: CASE EVENT DATE: 20020101
